FAERS Safety Report 12614125 (Version 1)
Quarter: 2016Q3

REPORT INFORMATION
  Report Type: Spontaneous
  Country: US (occurrence: None)
  Receive Date: 20160801
  Receipt Date: 20160801
  Transmission Date: 20161109
  Serious: Yes (Disabling)
  Sender: FDA-Public Use
  Company Number: None

PATIENT
  Age: 65 Year
  Sex: Female
  Weight: 73.94 kg

DRUGS (1)
  1. SUCRALFATE 1 GM TEVA USA (GENERIC) [Suspect]
     Active Substance: SUCRALFATE
     Indication: GASTRITIS
     Route: 048
     Dates: start: 20160725

REACTIONS (3)
  - Headache [None]
  - Sinus disorder [None]
  - Inflammation [None]

NARRATIVE: CASE EVENT DATE: 20160728
